FAERS Safety Report 5344544-7 (Version None)
Quarter: 2007Q2

REPORT INFORMATION
  Report Type: 
  Country: None (occurrence: None)
  Receive Date: 20070604
  Receipt Date: 20070530
  Transmission Date: 20071010
  Serious: Yes (Hospitalization)
  Sender: FDA-Public Use
  Company Number: US-MERCK-0705USA05772

PATIENT
  Age: 65 Year
  Sex: Male

DRUGS (6)
  1. ZETIA [Suspect]
     Indication: BLOOD CHOLESTEROL
     Route: 048
     Dates: start: 20060530
  2. METOPROLOL [Concomitant]
     Route: 065
  3. ISOBIDE [Concomitant]
     Route: 065
  4. LEVOTHYROXINE SODIUM [Concomitant]
     Route: 065
  5. POTASSIUM (UNSPECIFIED) [Concomitant]
     Route: 065
  6. ASPIRIN [Concomitant]
     Route: 065

REACTIONS (3)
  - DRUG INEFFECTIVE [None]
  - HAEMORRHAGE [None]
  - INFECTION [None]
